FAERS Safety Report 13812636 (Version 1)
Quarter: 2017Q3

REPORT INFORMATION
  Report Type: Spontaneous
  Country: GB (occurrence: GB)
  Receive Date: 20170729
  Receipt Date: 20170729
  Transmission Date: 20171127
  Serious: Yes (Other)
  Sender: FDA-Public Use
  Company Number: GB-MYLANLABS-2017M1026817

PATIENT
  Age: 57 Year
  Sex: Female
  Weight: 59 kg

DRUGS (5)
  1. BECONASE AQ [Concomitant]
     Active Substance: BECLOMETHASONE DIPROPIONATE MONOHYDRATE
     Dosage: TWO SPRAYS TO BOTH NOSTRILS
     Route: 045
     Dates: start: 20150408, end: 20170220
  2. BENDROFLUMETHIAZIDE [Concomitant]
     Active Substance: BENDROFLUMETHIAZIDE
     Dosage: 1 DF, QD
     Dates: start: 20060522
  3. AMLODIPINE [Suspect]
     Active Substance: AMLODIPINE BESYLATE
     Dosage: UNK
     Dates: start: 20060711
  4. LOSARTAN. [Concomitant]
     Active Substance: LOSARTAN
     Dosage: 1 DF, QD
     Dates: start: 20110717
  5. WARFARIN SODIUM. [Concomitant]
     Active Substance: WARFARIN SODIUM
     Dosage: ASD
     Dates: start: 20150817

REACTIONS (1)
  - Gingival swelling [Recovered/Resolved]

NARRATIVE: CASE EVENT DATE: 20160418
